FAERS Safety Report 5038128-8 (Version None)
Quarter: 2006Q2

REPORT INFORMATION
  Report Type: 
  Country: None (occurrence: None)
  Receive Date: 20060626
  Receipt Date: 20060616
  Transmission Date: 20061013
  Serious: No
  Sender: FDA-Public Use
  Company Number: TPA2004A00292

PATIENT
  Age: 62 Year
  Sex: Male

DRUGS (6)
  1. ACTOS [Suspect]
     Indication: DIABETES MELLITUS
     Dosage: PER ORAL
     Route: 048
  2. ORAL AGENT (ORAL ANTIDIABETICS) [Concomitant]
  3. PRINIVIL [Concomitant]
  4. ASPIRIN [Concomitant]
  5. LASIX [Concomitant]
  6. ANTIHYPERTENSIVE (ANTIHYPERTENSIVES) [Concomitant]

REACTIONS (7)
  - ANEURYSM [None]
  - DIABETIC RETINAL OEDEMA [None]
  - MACULAR OEDEMA [None]
  - OEDEMA PERIPHERAL [None]
  - RETINAL HAEMORRHAGE [None]
  - SWELLING FACE [None]
  - VITREOUS HAEMORRHAGE [None]
